FAERS Safety Report 9515182 (Version 1)
Quarter: 2013Q3

REPORT INFORMATION
  Report Type: Spontaneous
  Country: US (occurrence: US)
  Receive Date: 20130911
  Receipt Date: 20130911
  Transmission Date: 20140515
  Serious: Yes (Other)
  Sender: FDA-Public Use
  Company Number: US-COVIDIEN/TYCO HEALTHCARE/MALLINCKRODT-T201304309

PATIENT
  Sex: Male
  Weight: 52.15 kg

DRUGS (4)
  1. FENTANYL TRANSDERMAL SYSTEM [Suspect]
     Indication: SPINAL CORD INJURY
     Dosage: 50 UG/HR, ONE FTS Q 72 HRS
     Route: 062
     Dates: start: 201306
  2. FENTANYL TRANSDERMAL SYSTEM [Suspect]
     Indication: PAIN
     Dosage: 75UG/HR, 1 FTS Q 72 HOURS
     Route: 062
     Dates: start: 201305, end: 201306
  3. MORPHINE SULFATE [Concomitant]
     Indication: BREAKTHROUGH PAIN
     Dosage: UNK
  4. DIAZEPAM [Concomitant]
     Dosage: UNK

REACTIONS (5)
  - Respiratory depression [Recovered/Resolved]
  - Euphoric mood [Not Recovered/Not Resolved]
  - Drug effect increased [Not Recovered/Not Resolved]
  - Drug ineffective [Not Recovered/Not Resolved]
  - Product adhesion issue [Recovered/Resolved]
